FAERS Safety Report 6612562-4 (Version None)
Quarter: 2010Q1

REPORT INFORMATION
  Report Type: 
  Country: None (occurrence: None)
  Receive Date: 20100303
  Receipt Date: 20100222
  Transmission Date: 20100710
  Serious: Yes (Other)
  Sender: FDA-Public Use
  Company Number: JP-JNJFOC-20100210786

PATIENT
  Sex: Female

DRUGS (18)
  1. RISPERDAL CONSTA [Suspect]
     Indication: SCHIZOPHRENIA
     Route: 030
  2. RISPERDAL CONSTA [Suspect]
     Route: 030
  3. RISPERIDONE [Suspect]
     Indication: SCHIZOPHRENIA
     Route: 048
  4. RISPERIDONE [Suspect]
     Route: 048
  5. RISPERIDONE [Suspect]
     Route: 048
  6. LITHIUM CARBONATE [Concomitant]
     Indication: SCHIZOPHRENIA
     Route: 048
  7. LITHIUM CARBONATE [Concomitant]
     Route: 048
  8. LITHIUM CARBONATE [Concomitant]
     Route: 048
  9. WINTERMIN [Concomitant]
     Indication: SCHIZOPHRENIA
     Route: 048
  10. BIBITTOACE [Concomitant]
     Indication: SCHIZOPHRENIA
     Route: 048
  11. BIBITTOACE [Concomitant]
     Route: 048
  12. EVAMYL [Concomitant]
     Indication: SCHIZOPHRENIA
     Route: 048
  13. BENZALIN [Concomitant]
     Indication: SCHIZOPHRENIA
     Route: 048
  14. DIAZEPAM [Concomitant]
     Indication: SCHIZOPHRENIA
     Route: 048
  15. NEULEPTIL [Concomitant]
     Indication: SCHIZOPHRENIA
     Route: 048
  16. NEULEPTIL [Concomitant]
     Route: 048
  17. NEULEPTIL [Concomitant]
     Route: 048
  18. NEULEPTIL [Concomitant]
     Route: 048

REACTIONS (1)
  - DIABETES MELLITUS [None]
